APPROVED DRUG PRODUCT: BEVESPI AEROSPHERE
Active Ingredient: FORMOTEROL FUMARATE; GLYCOPYRROLATE
Strength: 0.0048MG/INH;0.0090MG/INH
Dosage Form/Route: AEROSOL, METERED;INHALATION
Application: N208294 | Product #001
Applicant: ASTRAZENECA PHARMACEUTICALS LP
Approved: Apr 25, 2016 | RLD: Yes | RS: Yes | Type: RX

PATENTS:
Patent 8324266 | Expires: May 28, 2030
Patent 10716753 | Expires: May 28, 2030
Patent 9415009 | Expires: May 28, 2030
Patent 8703806 | Expires: May 28, 2030
Patent 8808713 | Expires: May 28, 2030
Patent 9463161 | Expires: May 28, 2030
Patent 8815258 | Expires: Mar 17, 2031